FAERS Safety Report 8508612-0 (Version None)
Quarter: 2012Q3

REPORT INFORMATION
  Report Type: 
  Country: None (occurrence: None)
  Receive Date: 20120703
  Receipt Date: 20120625
  Transmission Date: 20120928
  Serious: Yes (Hospitalization)
  Sender: FDA-Public Use
  Company Number: 2012ST000517

PATIENT
  Age: 79 Year
  Sex: Male

DRUGS (1)
  1. MATULANE [Suspect]
     Indication: LYMPHOMA
     Dosage: 200 MG;QD;PO
     Route: 048
     Dates: start: 20120109, end: 20120601

REACTIONS (5)
  - LOSS OF CONSCIOUSNESS [None]
  - HEAT EXHAUSTION [None]
  - LOBAR PNEUMONIA [None]
  - STAPHYLOCOCCAL BACTERAEMIA [None]
  - COMA [None]
